FAERS Safety Report 8061079-1 (Version None)
Quarter: 2012Q1

REPORT INFORMATION
  Report Type: 
  Country: None (occurrence: None)
  Receive Date: 20120120
  Receipt Date: 20110427
  Transmission Date: 20120608
  Serious: No
  Sender: FDA-Public Use
  Company Number: US-ALLERGAN-1016875US

PATIENT
  Age: 64 Year
  Sex: Female

DRUGS (3)
  1. SYSTANE [Concomitant]
     Indication: DRY EYE
     Dosage: USES ALL DAY LONG
     Route: 047
  2. RESTASIS [Suspect]
     Indication: DRY EYE
     Dosage: 2 GTT, BID
     Route: 047
     Dates: start: 20110201, end: 20110301
  3. RESTASIS [Suspect]

REACTIONS (2)
  - EYE IRRITATION [None]
  - EYE DISCHARGE [None]
